FAERS Safety Report 14542373 (Version 1)
Quarter: 2018Q1

REPORT INFORMATION
  Report Type: Other
  Country: GB (occurrence: GB)
  Receive Date: 20180216
  Receipt Date: 20180216
  Transmission Date: 20180509
  Serious: Yes (Other)
  Sender: FDA-Public Use
  Company Number: GB-CELLTRION INC.-2018GB017945

PATIENT

DRUGS (13)
  1. INFLIXIMAB (UNKNOWN) [Suspect]
     Active Substance: INFLIXIMAB
     Indication: ANKYLOSING SPONDYLITIS
     Dosage: 300 MG,PHARMACEUTICAL DOSE FORM :293
     Route: 042
     Dates: start: 20171118, end: 20171118
  2. ALLOPURINOL                        /00003302/ [Concomitant]
     Active Substance: ALLOPURINOL
  3. DEXCEL-PHARMA OMEPRAZOLE [Concomitant]
  4. BENDROFLUMETHIAZIDE [Concomitant]
     Active Substance: BENDROFLUMETHIAZIDE
  5. BISOPROLOL [Concomitant]
     Active Substance: BISOPROLOL
  6. INFLIXIMAB (UNKNOWN) [Suspect]
     Active Substance: INFLIXIMAB
     Dosage: 300 MG,PHARMACEUTICAL DOSE FORM :293
     Route: 042
     Dates: start: 20171218, end: 20171218
  7. IBANDRONIC ACID                    /01304702/ [Concomitant]
  8. DOXADURA [Concomitant]
  9. NAPROSYN [Concomitant]
     Active Substance: NAPROXEN
  10. ATORVASTATIN [Concomitant]
     Active Substance: ATORVASTATIN
  11. CANDESARTAN. [Concomitant]
     Active Substance: CANDESARTAN
  12. AMITRIPTYLINE [Concomitant]
     Active Substance: AMITRIPTYLINE
  13. CITALOPRAM [Concomitant]
     Active Substance: CITALOPRAM HYDROBROMIDE

REACTIONS (7)
  - Hypersensitivity [Recovered/Resolved]
  - Feeling hot [Recovered/Resolved]
  - Paraesthesia oral [Recovered/Resolved]
  - Dyspnoea [Recovered/Resolved]
  - Flushing [Recovered/Resolved]
  - Palpitations [Recovered/Resolved]
  - Rash pruritic [Recovered/Resolved]

NARRATIVE: CASE EVENT DATE: 20171218
